FAERS Safety Report 7215991-3 (Version None)
Quarter: 2011Q1

REPORT INFORMATION
  Report Type: 
  Country: None (occurrence: None)
  Receive Date: 20110107
  Receipt Date: 20101227
  Transmission Date: 20110831
  Serious: Yes (Disabling)
  Sender: FDA-Public Use
  Company Number: GXKR2010JP03498

PATIENT
  Age: 75 Year
  Sex: Female

DRUGS (4)
  1. ESANBUTOL [Suspect]
     Dosage: 250 MG, UNK
     Route: 048
     Dates: start: 20090301, end: 20090901
  2. ISONIAZID [Concomitant]
     Route: 048
  3. RIMACTANE [Suspect]
     Dosage: 150 MG, UNK
     Route: 048
     Dates: start: 20090301, end: 20090901
  4. ISCOTIN [Suspect]
     Dosage: UNK
     Route: 048

REACTIONS (1)
  - VISUAL IMPAIRMENT [None]
